FAERS Safety Report 10573186 (Version 1)
Quarter: 2014Q4

REPORT INFORMATION
  Report Type: Spontaneous
  Country: US (occurrence: US)
  Receive Date: 20141110
  Receipt Date: 20141110
  Transmission Date: 20150529
  Serious: Yes (Other)
  Sender: FDA-Public Use
  Company Number: US-SA-2014SA153128

PATIENT
  Age: 42 Year
  Sex: Male
  Weight: 75 kg

DRUGS (1)
  1. FABRAZYME [Suspect]
     Active Substance: AGALSIDASE BETA
     Route: 041

REACTIONS (2)
  - Cataract [Unknown]
  - Post procedural complication [Unknown]
